FAERS Safety Report 9248471 (Version 1)
Quarter: 2013Q2

REPORT INFORMATION
  Report Type: Spontaneous
  Country: GB (occurrence: GB)
  Receive Date: 20130423
  Receipt Date: 20130423
  Transmission Date: 20140414
  Serious: Yes (Life-Threatening, Hospitalization)
  Sender: FDA-Public Use
  Company Number: GB-ASTRAZENECA-2013SE27026

PATIENT
  Age: 89 Year
  Sex: Female
  Weight: 40 kg

DRUGS (9)
  1. LISINOPRIL [Suspect]
     Route: 048
  2. ADCAL-D3 [Suspect]
     Indication: OSTEOPOROSIS
     Route: 048
  3. FUROSEMIDE [Suspect]
     Route: 048
     Dates: start: 20130405
  4. ALENDRONIC ACID [Concomitant]
  5. AMOXICILLIN [Concomitant]
  6. CO-TENIDONE [Concomitant]
  7. LANSOPRAZOLE [Concomitant]
  8. NITROFURANTOIN [Concomitant]
  9. SIMVASTATIN [Concomitant]

REACTIONS (4)
  - Hypercalcaemia [Recovered/Resolved]
  - Lung disorder [Unknown]
  - Lower respiratory tract infection [Unknown]
  - Renal failure acute [Recovering/Resolving]
